FAERS Safety Report 23488884 (Version 9)
Quarter: 2025Q3

REPORT INFORMATION
  Report Type: Spontaneous
  Country: US (occurrence: US)
  Receive Date: 20240206
  Receipt Date: 20250825
  Transmission Date: 20251021
  Serious: Yes (Other)
  Sender: PFIZER
  Company Number: US-PFIZER INC-202400032969

PATIENT
  Age: 83 Year
  Sex: Female
  Weight: 50.349 kg

DRUGS (8)
  1. VYNDAMAX [Suspect]
     Active Substance: TAFAMIDIS
     Indication: Cardiac amyloidosis
     Dosage: 61 MG, 1X/DAY (ONE 61 MG TAFAMIDIS CAPSULE ORALLY ONCE DAILY)
     Route: 048
     Dates: start: 202312
  2. VYNDAMAX [Suspect]
     Active Substance: TAFAMIDIS
     Indication: Acquired ATTR amyloidosis
     Dosage: 61 MG, 1X/DAY
     Route: 048
     Dates: start: 2024
  3. VYNDAMAX [Suspect]
     Active Substance: TAFAMIDIS
     Indication: Cardiac failure congestive
     Dosage: 61 MG, 1X/DAY
     Route: 048
     Dates: start: 20240116
  4. VYNDAMAX [Suspect]
     Active Substance: TAFAMIDIS
     Indication: Amyloidosis
     Dosage: 61 MG, 1X/DAY
     Dates: start: 20240207
  5. VYNDAMAX [Suspect]
     Active Substance: TAFAMIDIS
     Indication: Atrial fibrillation
  6. POTASSIUM [Concomitant]
     Active Substance: POTASSIUM
  7. ELIQUIS [Concomitant]
     Active Substance: APIXABAN
  8. TORSEMIDE [Concomitant]
     Active Substance: TORSEMIDE

REACTIONS (10)
  - Skin burning sensation [Recovered/Resolved]
  - Erythema [Recovered/Resolved]
  - Dry skin [Recovered/Resolved]
  - Pain of skin [Recovered/Resolved]
  - Skin exfoliation [Recovered/Resolved]
  - Ocular hyperaemia [Recovered/Resolved]
  - Periorbital swelling [Recovered/Resolved]
  - Skin irritation [Recovered/Resolved]
  - COVID-19 [Unknown]
  - Dyspnoea [Unknown]

NARRATIVE: CASE EVENT DATE: 20240101
